FAERS Safety Report 5798617-5 (Version None)
Quarter: 2008Q3

REPORT INFORMATION
  Report Type: 
  Country: None (occurrence: None)
  Receive Date: 20080702
  Receipt Date: 20080619
  Transmission Date: 20090109
  Serious: Yes (Hospitalization, Other)
  Sender: FDA-Public Use
  Company Number: PHHO2004FR15637

PATIENT
  Sex: Female
  Weight: 83 kg

DRUGS (4)
  1. STI571/CGP57148B T35717+CAPS [Suspect]
     Indication: FIBROMATOSIS
     Dosage: 400 MG, QD
     Dates: start: 20040915, end: 20041019
  2. STI571/CGP57148B T35717+CAPS [Suspect]
     Indication: DESMOID TUMOUR
     Dosage: 100 MG, QD
     Dates: start: 20041109, end: 20041111
  3. KENZEN [Concomitant]
  4. OMEPRAZOLE [Concomitant]
     Dates: start: 20040915

REACTIONS (13)
  - BLOOD CREATINE PHOSPHOKINASE INCREASED [None]
  - COUGH [None]
  - ECZEMA [None]
  - EOSINOPHILIA [None]
  - HAEMATOMA [None]
  - HEADACHE [None]
  - MUSCLE SPASMS [None]
  - MYALGIA [None]
  - MYOGLOBINURIA [None]
  - PRURITUS [None]
  - RASH VESICULAR [None]
  - RENAL IMPAIRMENT [None]
  - RHABDOMYOLYSIS [None]
